FAERS Safety Report 4650449-7 (Version None)
Quarter: 2005Q2

REPORT INFORMATION
  Report Type: 
  Country: None (occurrence: None)
  Receive Date: 20050429
  Receipt Date: 20041208
  Transmission Date: 20051028
  Serious: Yes (Other)
  Sender: FDA-Public Use
  Company Number: 2004112461

PATIENT
  Age: 58 Year
  Sex: Female

DRUGS (1)
  1. ZOLOFT [Suspect]
     Indication: DEPRESSION
     Dosage: 50 MG (50 MG, 1 IN 1 D), ORAL
     Route: 048
     Dates: start: 20040819, end: 20040101

REACTIONS (7)
  - DEPRESSION [None]
  - DYSPHAGIA [None]
  - EYE OEDEMA [None]
  - FACE OEDEMA [None]
  - HALLUCINATION [None]
  - PHARYNGEAL OEDEMA [None]
  - SEROTONIN SYNDROME [None]
